FAERS Safety Report 6341421-X (Version None)
Quarter: 2009Q3

REPORT INFORMATION
  Report Type: 
  Country: None (occurrence: None)
  Receive Date: 20090904
  Receipt Date: 20090826
  Transmission Date: 20100115
  Serious: No
  Sender: FDA-Public Use
  Company Number: US-ELI_LILLY_AND_COMPANY-US200908006082

PATIENT
  Sex: Male

DRUGS (2)
  1. ZYPREXA [Suspect]
     Dosage: 1.25 MG, 3/D
     Dates: start: 20090801
  2. ZYPREXA [Suspect]
     Dosage: 2.5 MG, EACH EVENING
     Dates: start: 20090801

REACTIONS (2)
  - COUGH [None]
  - WHITE BLOOD CELL COUNT INCREASED [None]
